FAERS Safety Report 13354194 (Version 1)
Quarter: 2017Q1

REPORT INFORMATION
  Report Type: Spontaneous
  Country: US (occurrence: US)
  Receive Date: 20170318
  Receipt Date: 20170318
  Transmission Date: 20170429
  Serious: No
  Sender: FDA-Public Use
  Company Number: None

PATIENT
  Age: 44 Year
  Sex: Female
  Weight: 100.5 kg

DRUGS (6)
  1. BUSPAR [Concomitant]
     Active Substance: BUSPIRONE HYDROCHLORIDE
  2. PROCHLORPERIZINE [Concomitant]
     Active Substance: PROCHLORPERAZINE
  3. ZOFRAN [Concomitant]
     Active Substance: ONDANSETRON HYDROCHLORIDE
  4. ETOPOSIDE (VP-16) [Suspect]
     Active Substance: ETOPOSIDE
     Dosage: PLAN TO START ON 4/22/16 IF LABS WNL
     Dates: end: 20160403
  5. VALIUM [Concomitant]
     Active Substance: DIAZEPAM
  6. CISPLATIN. [Suspect]
     Active Substance: CISPLATIN
     Dates: end: 20160403

REACTIONS (1)
  - Neutrophil count decreased [None]

NARRATIVE: CASE EVENT DATE: 20160420
